FAERS Safety Report 5099937-2 (Version None)
Quarter: 2006Q3

REPORT INFORMATION
  Report Type: 
  Country: None (occurrence: None)
  Receive Date: 20060908
  Receipt Date: 20060421
  Transmission Date: 20061208
  Serious: Yes (Other)
  Sender: FDA-Public Use
  Company Number: FR-BRISTOL-MYERS SQUIBB COMPANY-13356175

PATIENT
  Age: 55 Year
  Sex: Male

DRUGS (5)
  1. VASTEN TABS 20 MG [Suspect]
     Indication: HYPERCHOLESTEROLAEMIA
     Route: 048
     Dates: start: 20060201
  2. METFORMIN HYDROCHLORIDE [Interacting]
     Indication: DIABETES MELLITUS
     Route: 048
     Dates: start: 20050101
  3. PERINDOPRIL ERBUMINE [Concomitant]
  4. VERAPAMIL [Concomitant]
  5. CLOPIDOGREL BISULFATE [Concomitant]

REACTIONS (3)
  - DRUG INTERACTION [None]
  - HEPATOCELLULAR DAMAGE [None]
  - HYPOGLYCAEMIA [None]
